FAERS Safety Report 7339394-6 (Version None)
Quarter: 2011Q1

REPORT INFORMATION
  Report Type: 
  Country: None (occurrence: None)
  Receive Date: 20110308
  Receipt Date: 20110225
  Transmission Date: 20110831
  Serious: Yes (Hospitalization)
  Sender: FDA-Public Use
  Company Number: JP-AMGEN-KDC434267

PATIENT
  Age: 53 Year
  Sex: Female
  Weight: 45 kg

DRUGS (21)
  1. PENTAZOCINE LACTATE [Concomitant]
     Route: 042
  2. TELEMINSOFT [Concomitant]
     Route: 054
  3. FLUOROURACIL [Concomitant]
     Indication: COLORECTAL CANCER
     Route: 040
     Dates: start: 20100803, end: 20100817
  4. CORTICOSTEROIDS [Concomitant]
     Indication: PROPHYLAXIS
     Route: 065
  5. PRIMPERAN TAB [Concomitant]
     Route: 042
  6. ERBITUX [Concomitant]
     Indication: COLORECTAL CANCER
     Route: 041
  7. PANITUMUMAB [Suspect]
     Indication: COLORECTAL CANCER
     Dosage: 6 MG/KG, Q2WK
     Route: 041
     Dates: start: 20100803, end: 20100817
  8. CALCIUM LEVOFOLINATE [Concomitant]
     Indication: COLORECTAL CANCER
     Route: 041
     Dates: start: 20100803, end: 20100817
  9. PYDOXAL [Concomitant]
     Route: 048
  10. DECADRON [Concomitant]
     Route: 042
  11. HYPEN [Concomitant]
     Indication: CANCER PAIN
     Route: 048
  12. OXALIPLATIN [Concomitant]
     Indication: COLORECTAL CANCER
     Route: 041
     Dates: start: 20100803, end: 20100817
  13. HIRUDOID [Concomitant]
     Route: 062
  14. PURSENNID [Concomitant]
     Route: 048
  15. FLUOROURACIL [Concomitant]
     Route: 041
     Dates: start: 20100803, end: 20100817
  16. LANSOPRAZOLE [Concomitant]
     Indication: REFLUX OESOPHAGITIS
     Route: 048
  17. GRANISETRON HCL [Concomitant]
     Route: 042
  18. KYTRIL [Concomitant]
     Route: 048
  19. MAGMITT [Concomitant]
     Route: 048
  20. POSTERISAN [Concomitant]
     Route: 062
  21. MINOCYCLINE HYDROCHLORIDE [Concomitant]
     Route: 048

REACTIONS (7)
  - STOMATITIS [None]
  - FUNGAEMIA [None]
  - DERMATITIS ACNEIFORM [None]
  - PAIN IN EXTREMITY [None]
  - LOWER GASTROINTESTINAL HAEMORRHAGE [None]
  - PRURITUS [None]
  - ABDOMINAL PAIN LOWER [None]
